FAERS Safety Report 6544317-3 (Version None)
Quarter: 2010Q1

REPORT INFORMATION
  Report Type: 
  Country: None (occurrence: None)
  Receive Date: 20100120
  Receipt Date: 20100120
  Transmission Date: 20100710
  Serious: Yes (Other)
  Sender: FDA-Public Use
  Company Number: None

PATIENT
  Age: 57 Year
  Sex: Female
  Weight: 26.7622 kg

DRUGS (1)
  1. ALTEPLASE 100 MG GENENTECH [Suspect]
     Indication: ISCHAEMIC STROKE
     Dosage: 5 MG X 1 DOSE IV BOLUS
     Route: 040
     Dates: start: 20100103, end: 20100103

REACTIONS (2)
  - ANGIOEDEMA [None]
  - INFUSION RELATED REACTION [None]
